FAERS Safety Report 5085280-4 (Version None)
Quarter: 2006Q3

REPORT INFORMATION
  Report Type: 
  Country: None (occurrence: None)
  Receive Date: 20060816
  Receipt Date: 20060803
  Transmission Date: 20061208
  Serious: Yes (Other)
  Sender: FDA-Public Use
  Company Number: DEU-2006-0002396

PATIENT
  Age: 75 Year
  Sex: Male

DRUGS (5)
  1. HYDROMORPHONE HCL [Suspect]
     Indication: PAIN
     Dosage: 1 MG, SEE IMAGE, INTRAVENOUS
     Route: 042
  2. FLUDROCORTISONE [Concomitant]
  3. SULFONAMIDES, UREA DERIVATIVES [Concomitant]
  4. IMMUNOGLOBULINS [Concomitant]
  5. MIDODRINE HYDROCHLORIDE [Concomitant]

REACTIONS (8)
  - DEPRESSED LEVEL OF CONSCIOUSNESS [None]
  - ELECTROENCEPHALOGRAM ABNORMAL [None]
  - MIOSIS [None]
  - MUSCLE RIGIDITY [None]
  - MYOCLONUS [None]
  - NERVOUS SYSTEM DISORDER [None]
  - NEUROTOXICITY [None]
  - UNRESPONSIVE TO STIMULI [None]
